FAERS Safety Report 12942615 (Version 1)
Quarter: 2016Q4

REPORT INFORMATION
  Report Type: Spontaneous
  Country: FR (occurrence: FR)
  Receive Date: 20161114
  Receipt Date: 20161114
  Transmission Date: 20170207
  Serious: Yes (Other)
  Sender: FDA-Public Use
  Company Number: PHHY2016FR154081

PATIENT
  Age: 27 Year
  Sex: Male

DRUGS (2)
  1. BACLOFEN. [Suspect]
     Active Substance: BACLOFEN
     Indication: ALCOHOL DETOXIFICATION
     Dosage: 200 MG, QD
     Route: 048
     Dates: start: 201508, end: 20160222
  2. SERTRALINE [Suspect]
     Active Substance: SERTRALINE HYDROCHLORIDE
     Indication: ALCOHOL DETOXIFICATION
     Dosage: 250 MG, QD
     Route: 048
     Dates: start: 201508

REACTIONS (1)
  - Sexual activity increased [Recovering/Resolving]

NARRATIVE: CASE EVENT DATE: 201608
